FAERS Safety Report 11509553 (Version 1)
Quarter: 2015Q3

REPORT INFORMATION
  Report Type: Spontaneous
  Country: US (occurrence: US)
  Receive Date: 20150915
  Receipt Date: 20150915
  Transmission Date: 20151125
  Serious: No
  Sender: FDA-Public Use
  Company Number: US-JNJFOC-20150612308

PATIENT
  Age: 46 Year
  Sex: Male
  Weight: 72.58 kg

DRUGS (3)
  1. VITAMIN C [Concomitant]
     Active Substance: ASCORBIC ACID
     Indication: NUTRITIONAL SUPPLEMENTATION
     Dosage: 1 PILL/QD FOR 1 1/2 YEARS
     Route: 065
  2. TYLENOL EXTRA STRENGTH [Suspect]
     Active Substance: ACETAMINOPHEN
     Indication: HEADACHE
     Dosage: 1 CAPLET PRN
     Route: 048
  3. BREATH EASY TEA [Concomitant]
     Indication: DYSPNOEA
     Dosage: 1 BAG/ PM FOR 23 YEARS
     Route: 065
     Dates: start: 1992

REACTIONS (3)
  - Incorrect dose administered [Recovered/Resolved]
  - Fatigue [Recovered/Resolved]
  - Myalgia [Recovered/Resolved]
